FAERS Safety Report 4593281-5 (Version None)
Quarter: 2005Q1

REPORT INFORMATION
  Report Type: 
  Country: None (occurrence: None)
  Receive Date: 20050224
  Receipt Date: 20040412
  Transmission Date: 20050727
  Serious: Yes (Other)
  Sender: FDA-Public Use
  Company Number: US-BRISTOL-MYERS SQUIBB COMPANY-12557823

PATIENT
  Sex: Female

DRUGS (1)
  1. EXCEDRIN (MIGRAINE) [Suspect]
     Indication: MIGRAINE
     Dosage: DOSAGE: 2 TABS EVERY FEW HOURS - TOTALING 12 TABS
     Route: 048
     Dates: start: 20040411

REACTIONS (2)
  - DRUG INEFFECTIVE [None]
  - HAEMATEMESIS [None]
